FAERS Safety Report 6930674-2 (Version None)
Quarter: 2010Q3

REPORT INFORMATION
  Report Type: 
  Country: None (occurrence: None)
  Receive Date: 20100813
  Receipt Date: 20100804
  Transmission Date: 20110219
  Serious: Yes (Hospitalization)
  Sender: FDA-Public Use
  Company Number: 2010-2745

PATIENT
  Age: 79 Year
  Sex: Female

DRUGS (1)
  1. APO-GO PFS (APO-GO) (APOMORPHINE HYDROCHLORIDE) (APOMORPHINE HYDROCHLO [Suspect]
     Indication: PARKINSON'S DISEASE
     Dosage: (CONTINUOUS FOR 12.5 HOURS/DAY),SUBCUTANEOUS
     Route: 058
     Dates: start: 20100428

REACTIONS (1)
  - PAIN IN EXTREMITY [None]
